FAERS Safety Report 5309806-8 (Version None)
Quarter: 2007Q2

REPORT INFORMATION
  Report Type: 
  Country: None (occurrence: None)
  Receive Date: 20070427
  Receipt Date: 20061102
  Transmission Date: 20071010
  Serious: No
  Sender: FDA-Public Use
  Company Number: US-GLAXOSMITHKLINE-A0622476A

PATIENT
  Age: 52 Year
  Sex: Female

DRUGS (5)
  1. ZOFRAN [Suspect]
     Indication: PROPHYLAXIS OF NAUSEA AND VOMITING
     Dosage: 8MG AS REQUIRED
     Route: 048
     Dates: start: 20050609
  2. TEMODAR [Concomitant]
  3. POTASSIUM ACETATE [Concomitant]
  4. TRAMADOL HCL [Concomitant]
  5. CYCLOBENZAPRINE HCL [Concomitant]

REACTIONS (2)
  - DRUG INEFFECTIVE [None]
  - PHARMACEUTICAL PRODUCT COMPLAINT [None]
